FAERS Safety Report 7109888-7 (Version None)
Quarter: 2010Q4

REPORT INFORMATION
  Report Type: 
  Country: None (occurrence: None)
  Receive Date: 20101118
  Receipt Date: 20101112
  Transmission Date: 20110411
  Serious: Yes (Death, Other)
  Sender: FDA-Public Use
  Company Number: PHHY2010BR59891

PATIENT
  Sex: Female

DRUGS (5)
  1. EXELON [Suspect]
     Dosage: 9.5 MG/10 CM2
  2. HYGROTON [Suspect]
  3. LEPONEX [Suspect]
     Dosage: 100 MG
  4. LEPONEX [Suspect]
     Dosage: 25 MG
  5. CARVEDILOL [Suspect]
     Dosage: UNK

REACTIONS (3)
  - DEATH [None]
  - SHOCK [None]
  - SYNCOPE [None]
